FAERS Safety Report 5213926-6 (Version None)
Quarter: 2007Q1

REPORT INFORMATION
  Report Type: 
  Country: None (occurrence: None)
  Receive Date: 20070117
  Receipt Date: 20070103
  Transmission Date: 20070707
  Serious: Yes (Hospitalization)
  Sender: FDA-Public Use
  Company Number: VNL_0256_2006

PATIENT
  Age: 69 Year
  Sex: Male
  Weight: 102.5129 kg

DRUGS (16)
  1. APOKYN [Suspect]
     Indication: PARKINSON'S DISEASE
     Dosage: 0.4 ML SC
     Route: 058
     Dates: start: 20060606, end: 20061025
  2. APOKYN [Suspect]
     Indication: PARKINSON'S DISEASE
     Dosage: 0.4 ML VARIABLE SC
     Route: 058
     Dates: start: 20061101, end: 20061101
  3. APOKYN [Suspect]
     Indication: PARKINSON'S DISEASE
     Dosage: VAR VARIABLE SC
     Route: 058
  4. TASMAR [Concomitant]
  5. SINEMET [Concomitant]
  6. AMANTADINE HCL [Concomitant]
  7. CELEBREX [Concomitant]
  8. NEXIUM [Concomitant]
  9. LIPITOR [Concomitant]
  10. ASPIRIN [Concomitant]
  11. MIRAPEX [Concomitant]
  12. RASAGILINE [Concomitant]
  13. TYLENOL [Concomitant]
  14. FOLIC ACID [Concomitant]
  15. FLOMAX [Concomitant]
  16. METHOTREXATE [Concomitant]

REACTIONS (8)
  - ARTHRALGIA [None]
  - ARTHRITIS [None]
  - BACK PAIN [None]
  - BLOOD PRESSURE DECREASED [None]
  - DRUG INEFFECTIVE [None]
  - NERVE COMPRESSION [None]
  - PHARMACEUTICAL PRODUCT COMPLAINT [None]
  - SPINAL COLUMN STENOSIS [None]
